FAERS Safety Report 8365202 (Version 2)
Quarter: 2013Q1

REPORT INFORMATION
  Report Type: Report from Study
  Country: US (occurrence: US)
  Receive Date: 20120128
  Receipt Date: 20130130
  Transmission Date: 20140127
  Serious: No
  Sender: FDA-Public Use
  Company Number: US-ABBOTT-11P-163-0703722-00

PATIENT
  Age: 47 None
  Sex: Female
  Weight: 74.91 kg

DRUGS (8)
  1. HUMIRA 40 MG/0.8 ML PEN [Suspect]
     Indication: PSORIATIC ARTHROPATHY
     Route: 058
     Dates: start: 201005
  2. NAPROXEN [Concomitant]
     Indication: ARTHRALGIA
     Route: 048
  3. FISH OIL [Concomitant]
     Indication: PRODUCT USED FOR UNKNOWN INDICATION
  4. FLAX SEED OIL [Concomitant]
     Indication: PRODUCT USED FOR UNKNOWN INDICATION
  5. VITAMIN C [Concomitant]
     Indication: VITAMIN SUPPLEMENTATION
     Route: 048
  6. VITAMIN D [Concomitant]
     Indication: VITAMIN SUPPLEMENTATION
  7. MULTIVITAMIN [Concomitant]
     Indication: VITAMIN SUPPLEMENTATION
  8. CALCIUM [Concomitant]
     Indication: ANTIINFLAMMATORY THERAPY

REACTIONS (10)
  - Injection site pain [Not Recovered/Not Resolved]
  - Injection site nodule [Recovered/Resolved]
  - Injection site pain [Recovered/Resolved]
  - Device malfunction [Recovered/Resolved]
  - Incorrect dose administered [Recovering/Resolving]
  - Injection site vesicles [Recovering/Resolving]
  - Injection site haemorrhage [Recovering/Resolving]
  - Injection site urticaria [Recovering/Resolving]
  - Injection site extravasation [Recovering/Resolving]
  - Injection site bruising [Recovering/Resolving]
